FAERS Safety Report 23358860 (Version 1)
Quarter: 2024Q1

REPORT INFORMATION
  Report Type: Spontaneous
  Country: AU (occurrence: AU)
  Receive Date: 20240102
  Receipt Date: 20240102
  Transmission Date: 20240409
  Serious: Yes (Other)
  Sender: FDA-Public Use
  Company Number: AU-PFIZER INC-PV202300206385

PATIENT
  Sex: Female

DRUGS (4)
  1. METHOTREXATE SODIUM [Suspect]
     Active Substance: METHOTREXATE SODIUM
     Indication: Neurosarcoidosis
     Dosage: 20 MG, WEEKLY
  2. DEXAMETHASONE SODIUM PHOSPHATE [Suspect]
     Active Substance: DEXAMETHASONE PHOSPHATE\DEXAMETHASONE SODIUM PHOSPHATE
     Indication: Iridocyclitis
  3. PREDNISOLONE [Suspect]
     Active Substance: PREDNISOLONE
     Indication: Neurosarcoidosis
     Dosage: 10 MG, DAILY
     Dates: start: 2022
  4. PREDNISOLONE [Suspect]
     Active Substance: PREDNISOLONE
     Dosage: 8 MG

REACTIONS (6)
  - Deafness neurosensory [Unknown]
  - Rebound effect [Unknown]
  - Diplopia [Unknown]
  - Vertigo [Unknown]
  - Ataxia [Unknown]
  - Off label use [Unknown]

NARRATIVE: CASE EVENT DATE: 20220701
